FAERS Safety Report 12989763 (Version 1)
Quarter: 2016Q4

REPORT INFORMATION
  Report Type: Spontaneous
  Country: US (occurrence: US)
  Receive Date: 20161201
  Receipt Date: 20161201
  Transmission Date: 20170207
  Serious: No
  Sender: FDA-Public Use
  Company Number: PHEH2016US031128

PATIENT
  Age: 59 Year
  Sex: Male

DRUGS (1)
  1. TAFINLAR [Suspect]
     Active Substance: DABRAFENIB MESYLATE
     Indication: PANCREATIC CARCINOMA
     Dosage: 150 MG, BID
     Route: 048
     Dates: start: 20160706

REACTIONS (3)
  - Musculoskeletal pain [Unknown]
  - Product use issue [Unknown]
  - Rash [Unknown]

NARRATIVE: CASE EVENT DATE: 20160706
